FAERS Safety Report 21543498 (Version 3)
Quarter: 2023Q1

REPORT INFORMATION
  Report Type: Spontaneous
  Country: US (occurrence: US)
  Receive Date: 20221102
  Receipt Date: 20230227
  Transmission Date: 20230417
  Serious: Yes (Other)
  Sender: FDA-Public Use
  Company Number: US-BRISTOL-MYERS SQUIBB COMPANY-2022-129787

PATIENT
  Age: 75 Year
  Sex: Female

DRUGS (2)
  1. REVLIMID [Suspect]
     Active Substance: LENALIDOMIDE
     Indication: Plasma cell myeloma
     Dosage: TAKE 1 WHOLE CAPSULE BY MOUTH WITH WATER AT THE SAME TIME EACH DAY ON DAYS 1-21 OF EACH 35 DAY CYCLE
     Route: 048
     Dates: start: 20220617
  2. REVLIMID [Suspect]
     Active Substance: LENALIDOMIDE
     Dosage: TAKE 1 CAPSULE BY MOUTH ON DAYS 1-21 OF EACH 28 DAY CYCLE. TAKE WHOLE WITH WATER AT THE SAME TIME DA
     Route: 048
     Dates: end: 20230220

REACTIONS (4)
  - Neuropathy peripheral [Not Recovered/Not Resolved]
  - Dementia [Unknown]
  - Peripheral swelling [Not Recovered/Not Resolved]
  - Off label use [Unknown]
